FAERS Safety Report 8039567-3 (Version None)
Quarter: 2012Q1

REPORT INFORMATION
  Report Type: 
  Country: None (occurrence: None)
  Receive Date: 20120111
  Receipt Date: 20111219
  Transmission Date: 20120608
  Serious: No
  Sender: FDA-Public Use
  Company Number: US-AMGEN-USASP2011067653

PATIENT
  Age: 36 Year
  Sex: Female

DRUGS (1)
  1. ENBREL [Suspect]
     Indication: RHEUMATOID ARTHRITIS
     Dosage: 50 MG, QWK
     Dates: start: 20091215

REACTIONS (8)
  - EAR PAIN [None]
  - ASTHMA [None]
  - NIGHTMARE [None]
  - SINUS HEADACHE [None]
  - NASAL CONGESTION [None]
  - LYMPHADENOPATHY [None]
  - PRODUCTIVE COUGH [None]
  - OROPHARYNGEAL PAIN [None]
